FAERS Safety Report 23055794 (Version 1)
Quarter: 2023Q4

REPORT INFORMATION
  Report Type: Spontaneous
  Country: JP (occurrence: JP)
  Receive Date: 20231011
  Receipt Date: 20231011
  Transmission Date: 20240109
  Serious: Yes (Hospitalization, Other)
  Sender: FDA-Public Use
  Company Number: JP-SUN PHARMACEUTICAL INDUSTRIES LTD-2023R1-410957

PATIENT
  Age: 8 Decade
  Sex: Male

DRUGS (2)
  1. VALACYCLOVIR HYDROCHLORIDE [Suspect]
     Active Substance: VALACYCLOVIR HYDROCHLORIDE
     Indication: Herpes zoster
     Dosage: 2000 MILLIGRAM, DAILY
     Route: 048
  2. LOXOPROFEN SODIUM [Suspect]
     Active Substance: LOXOPROFEN SODIUM
     Indication: Herpes zoster
     Dosage: UNKNOWN
     Route: 048

REACTIONS (3)
  - Toxic encephalopathy [Recovering/Resolving]
  - Pneumonia aspiration [Recovering/Resolving]
  - Pulmonary oedema [Recovering/Resolving]
